FAERS Safety Report 10367335 (Version 1)
Quarter: 2014Q3

REPORT INFORMATION
  Report Type: Spontaneous
  Country: US (occurrence: None)
  Receive Date: 20140805
  Receipt Date: 20140805
  Transmission Date: 20150326
  Serious: Yes (Other)
  Sender: FDA-Public Use
  Company Number: None

PATIENT
  Age: 51 Year
  Sex: Female
  Weight: 99.79 kg

DRUGS (1)
  1. MIRALAX [Suspect]
     Active Substance: POLYETHYLENE GLYCOL 3350
     Indication: COLONOSCOPY
     Route: 048
     Dates: start: 20140803, end: 20140803

REACTIONS (13)
  - Dizziness [None]
  - Abdominal pain upper [None]
  - Middle insomnia [None]
  - Dysphonia [None]
  - Headache [None]
  - Paraesthesia [None]
  - Flushing [None]
  - Muscle tightness [None]
  - Hangover [None]
  - Vomiting [None]
  - Chest discomfort [None]
  - Nausea [None]
  - Neck pain [None]

NARRATIVE: CASE EVENT DATE: 20140803
